FAERS Safety Report 8963976 (Version 3)
Quarter: 2013Q1

REPORT INFORMATION
  Report Type: Spontaneous
  Country: US (occurrence: US)
  Receive Date: 20121214
  Receipt Date: 20130315
  Transmission Date: 20140127
  Serious: Yes (Hospitalization)
  Sender: FDA-Public Use
  Company Number: US-BAYER-2012-129257

PATIENT
  Age: 47 Year
  Sex: Female
  Weight: 86.17 kg

DRUGS (6)
  1. YAZ [Suspect]
     Indication: MENORRHAGIA
     Dosage: UNK
     Dates: start: 20070801, end: 200709
  2. OCELLA [Suspect]
     Indication: MENORRHAGIA
     Dosage: UNK
     Dates: start: 2007, end: 2007
  3. NORTREL [ETHINYLESTRADIOL,NORETHISTERONE] [Concomitant]
  4. PREMARIN [ESTROGENS CONJUGATED] [Concomitant]
     Dosage: 25 MG, UNK
  5. MOTRIN [Concomitant]
     Dosage: PRN
  6. IBUPROFEN [IBUPROFEN] [Concomitant]

REACTIONS (12)
  - Pulmonary embolism [None]
  - Pulmonary embolism [None]
  - Deep vein thrombosis [None]
  - Pain [None]
  - Injury [None]
  - General physical health deterioration [None]
  - Emotional distress [None]
  - Anxiety [None]
  - Anhedonia [None]
  - Pain [None]
  - Mental disorder [None]
  - Off label use [None]
